FAERS Safety Report 18321032 (Version 1)
Quarter: 2020Q3

REPORT INFORMATION
  Report Type: Spontaneous
  Country: CH (occurrence: CH)
  Receive Date: 20200928
  Receipt Date: 20200928
  Transmission Date: 20201103
  Serious: Yes (Hospitalization, Other)
  Sender: FDA-Public Use
  Company Number: CH-CHEPLA-C20191685

PATIENT
  Age: 54 Year
  Sex: Male

DRUGS (28)
  1. BLEOMYCIN [Suspect]
     Active Substance: BLEOMYCIN SULFATE
     Indication: HODGKIN^S DISEASE
     Dosage: TWO CYCLES OF ABVD
     Route: 065
     Dates: start: 20190318, end: 20190318
  2. ENDOXAN 1 G [Suspect]
     Active Substance: CYCLOPHOSPHAMIDE
     Indication: HODGKIN^S DISEASE
     Dosage: 2ND CYCLE OF BEACOPP
     Route: 041
     Dates: start: 20190423, end: 20190423
  3. PREDNISOLONE. [Suspect]
     Active Substance: PREDNISOLONE
     Indication: HODGKIN^S DISEASE
     Dosage: FIRST CYCLE OF BEACOPP
     Route: 041
     Dates: start: 20190423, end: 20190423
  4. DOXORUBICIN [Suspect]
     Active Substance: DOXORUBICIN
     Indication: HODGKIN^S DISEASE
     Dosage: TWO CYCLES OF ABVD
     Route: 065
     Dates: start: 201901, end: 201903
  5. DOXORUBICIN [Suspect]
     Active Substance: DOXORUBICIN
     Indication: HODGKIN^S DISEASE
     Dosage: FIRST CYCLE OF BEACOPP
     Route: 041
     Dates: start: 20190318, end: 20190318
  6. DOXORUBICIN [Suspect]
     Active Substance: DOXORUBICIN
     Indication: HODGKIN^S DISEASE
     Dosage: 2ND CYCLE OF BEACOPP
     Route: 041
     Dates: start: 20190318, end: 20190318
  7. ENDOXAN 1 G [Suspect]
     Active Substance: CYCLOPHOSPHAMIDE
     Indication: HODGKIN^S DISEASE
     Dosage: FIRST CYCLE OF BEACOPP
     Route: 041
     Dates: start: 20190318, end: 20190318
  8. VINCRISTINE [Suspect]
     Active Substance: VINCRISTINE
     Indication: HODGKIN^S DISEASE
     Dosage: FIRST CYCLE OF BEACOPP
     Route: 041
     Dates: start: 20190318, end: 20190318
  9. VINCRISTINE [Suspect]
     Active Substance: VINCRISTINE
     Indication: HODGKIN^S DISEASE
     Dosage: 2ND CYCLE OF BEACOPP
     Route: 041
     Dates: start: 20190424, end: 20190424
  10. PROCARBAZINE [Suspect]
     Active Substance: PROCARBAZINE
     Indication: HODGKIN^S DISEASE
     Dosage: 2ND CYCLE OF BEACOPP
     Route: 041
     Dates: start: 20190423, end: 20190423
  11. CLOPIDOGREL [Concomitant]
     Active Substance: CLOPIDOGREL BISULFATE
     Indication: PRODUCT USED FOR UNKNOWN INDICATION
     Route: 048
  12. ETOPOSIDE PHOSPHATE [Suspect]
     Active Substance: ETOPOSIDE PHOSPHATE
     Indication: HODGKIN^S DISEASE
     Dosage: FIRST CYCLE OF BEACOPP
     Route: 041
     Dates: start: 20190318, end: 20190318
  13. DOXORUBICIN [Suspect]
     Active Substance: DOXORUBICIN
     Indication: HODGKIN^S DISEASE
     Dosage: TWO CYCLES OF ABVD
     Route: 065
     Dates: start: 20190318, end: 20190318
  14. VINBLASTINE [Suspect]
     Active Substance: VINBLASTINE
     Indication: HODGKIN^S DISEASE
     Dosage: TWO CYCLES OF ABVD
     Route: 065
     Dates: start: 201901, end: 201903
  15. PREDNISOLONE. [Suspect]
     Active Substance: PREDNISOLONE
     Indication: HODGKIN^S DISEASE
     Dosage: FIRST CYCLE OF BEACOPP
     Route: 041
     Dates: start: 20190318, end: 20190318
  16. BLEOMYCIN [Suspect]
     Active Substance: BLEOMYCIN SULFATE
     Indication: HODGKIN^S DISEASE
     Dosage: FIRST CYCLE OF BEACOPP
     Route: 041
     Dates: start: 20190318, end: 20190318
  17. ATORVASTATIN [Concomitant]
     Active Substance: ATORVASTATIN
     Indication: PRODUCT USED FOR UNKNOWN INDICATION
     Route: 048
  18. BLEOMYCIN [Suspect]
     Active Substance: BLEOMYCIN SULFATE
     Indication: HODGKIN^S DISEASE
     Dosage: TWO CYCLES OF ABVD
     Route: 065
     Dates: start: 201901, end: 201903
  19. PROCARBAZINE [Suspect]
     Active Substance: PROCARBAZINE
     Indication: HODGKIN^S DISEASE
     Dosage: FIRST CYCLE OF BEACOPP
     Route: 041
     Dates: start: 20190318, end: 20190318
  20. ETOPOSIDE PHOSPHATE [Suspect]
     Active Substance: ETOPOSIDE PHOSPHATE
     Indication: HODGKIN^S DISEASE
     Dosage: SECOND CYCLE OF BEACOPP
     Route: 041
     Dates: start: 20190423, end: 20190423
  21. BLEOMYCIN [Suspect]
     Active Substance: BLEOMYCIN SULFATE
     Indication: HODGKIN^S DISEASE
     Dosage: 2ND CYCLE OF BEACOPP
     Route: 041
     Dates: start: 20190424, end: 20190424
  22. G?CSF [Suspect]
     Active Substance: GRANULOCYTE COLONY-STIMULATING FACTOR NOS
     Indication: HODGKIN^S DISEASE
     Route: 041
     Dates: start: 20190318, end: 20190318
  23. LISINOPRIL. [Concomitant]
     Active Substance: LISINOPRIL
     Indication: PRODUCT USED FOR UNKNOWN INDICATION
     Route: 048
  24. METOPROLOL. [Concomitant]
     Active Substance: METOPROLOL
     Indication: PRODUCT USED FOR UNKNOWN INDICATION
     Route: 048
  25. CLEXANE [Concomitant]
     Active Substance: ENOXAPARIN SODIUM
     Indication: PRODUCT USED FOR UNKNOWN INDICATION
     Route: 058
  26. PICOSULFATE [Concomitant]
     Active Substance: SODIUM PICOSULFATE
     Indication: PRODUCT USED FOR UNKNOWN INDICATION
     Route: 048
  27. DACARBAZINE. [Suspect]
     Active Substance: DACARBAZINE
     Indication: HODGKIN^S DISEASE
     Dosage: TWO CYCLES OF ABVD
     Route: 065
     Dates: start: 201901, end: 201903
  28. ASPIRIN CARDIO [Concomitant]
     Active Substance: ASPIRIN
     Indication: PRODUCT USED FOR UNKNOWN INDICATION
     Route: 048

REACTIONS (2)
  - Enteritis [Recovered/Resolved]
  - Intestinal pseudo-obstruction [Recovered/Resolved]

NARRATIVE: CASE EVENT DATE: 20190405
